FAERS Safety Report 9611525 (Version 1)
Quarter: 2013Q4

REPORT INFORMATION
  Report Type: Spontaneous
  Country: GB (occurrence: GB)
  Receive Date: 20131010
  Receipt Date: 20131010
  Transmission Date: 20140711
  Serious: Yes (Death, Hospitalization, Other)
  Sender: FDA-Public Use
  Company Number: GB-BRISTOL-MYERS SQUIBB COMPANY-19490721

PATIENT
  Age: 76 Year
  Sex: Female

DRUGS (1)
  1. YERVOY [Suspect]
     Dates: start: 20121002

REACTIONS (4)
  - Death [Fatal]
  - Malignant neoplasm progression [Unknown]
  - Colitis [Recovering/Resolving]
  - Fatigue [Recovering/Resolving]
